FAERS Safety Report 7298891-2 (Version None)
Quarter: 2011Q1

REPORT INFORMATION
  Report Type: 
  Country: None (occurrence: None)
  Receive Date: 20110217
  Receipt Date: 20110209
  Transmission Date: 20110831
  Serious: Yes (Other)
  Sender: FDA-Public Use
  Company Number: JP-AMGEN-JPNCT2011009256

PATIENT
  Age: 57 Year
  Sex: Male

DRUGS (26)
  1. FLUMETHOLON [Concomitant]
     Dosage: UNK
     Route: 047
  2. PANITUMUMAB [Suspect]
     Dosage: 6 MG/KG, Q2WK
     Route: 041
     Dates: start: 20101222
  3. FLUOROURACIL [Concomitant]
     Indication: COLORECTAL CANCER
     Route: 041
     Dates: start: 20100804
  4. CALCIUM LEVOFOLINATE [Concomitant]
     Indication: COLORECTAL CANCER
     Route: 041
     Dates: start: 20100804
  5. GASMOTIN [Concomitant]
     Dosage: UNK
     Route: 048
  6. DIOVAN [Concomitant]
     Dosage: UNK
     Route: 048
  7. PANITUMUMAB [Suspect]
     Indication: COLORECTAL CANCER
     Dosage: 6 MG/KG, Q2WK
     Route: 041
     Dates: start: 20100804, end: 20100804
  8. HIRUDOID [Concomitant]
     Dosage: UNK
     Route: 062
  9. PREDONINE [Concomitant]
     Dosage: UNK
     Route: 047
  10. PROPETO [Concomitant]
     Dosage: UNK
     Route: 062
  11. IRINOTECAN HYDROCHLORIDE [Concomitant]
     Route: 041
     Dates: start: 20100901
  12. NAUZELIN [Concomitant]
     Dosage: UNK
     Route: 048
  13. DERMOVATE [Concomitant]
     Dosage: UNK
     Route: 062
  14. PANITUMUMAB [Suspect]
     Dosage: 6 MG/KG, Q2WK
     Route: 041
     Dates: start: 20100901, end: 20101124
  15. IRINOTECAN HYDROCHLORIDE [Concomitant]
     Indication: COLORECTAL CANCER
     Route: 041
     Dates: start: 20100804, end: 20100831
  16. MUCOSTA [Concomitant]
     Dosage: UNK
     Route: 048
  17. TSUMURA HOCHUUEKKITOU [Concomitant]
     Dosage: UNK
     Route: 048
  18. MINOMYCIN [Concomitant]
     Dosage: UNK
     Route: 048
  19. MAGNESOL [Concomitant]
     Dosage: UNK
     Route: 042
  20. LOCOID [Concomitant]
     Dosage: UNK
     Route: 062
  21. KENALOG [Concomitant]
     Dosage: UNK
     Route: 049
  22. MYSER [Concomitant]
     Dosage: UNK
     Route: 062
  23. PROMAC [Concomitant]
     Dosage: UNK
     Route: 048
  24. CORTICOSTEROIDS [Concomitant]
     Indication: PROPHYLAXIS
     Dosage: UNK
     Route: 065
  25. LOXONIN [Concomitant]
     Dosage: UNK
     Route: 048
  26. NORVASC [Concomitant]
     Dosage: UNK
     Route: 048

REACTIONS (8)
  - DRY SKIN [None]
  - BONE MARROW FAILURE [None]
  - LOOSE TOOTH [None]
  - CHEILITIS [None]
  - EYE DISCHARGE [None]
  - STOMATITIS [None]
  - HYPOMAGNESAEMIA [None]
  - RASH [None]
